FAERS Safety Report 7131137-4 (Version None)
Quarter: 2010Q4

REPORT INFORMATION
  Report Type: 
  Country: None (occurrence: None)
  Receive Date: 20101124
  Receipt Date: 20101124
  Transmission Date: 20110411
  Serious: Yes (Other)
  Sender: FDA-Public Use
  Company Number: None

PATIENT
  Age: 82 Year
  Sex: Male
  Weight: 72.5755 kg

DRUGS (1)
  1. SNORE STOP NASAL SPRAY GREEN PHARMACEUTICALS [Suspect]
     Indication: SNORING
     Dates: start: 20101114

REACTIONS (2)
  - BURNING SENSATION [None]
  - THROAT IRRITATION [None]
